FAERS Safety Report 10407837 (Version 3)
Quarter: 2014Q3

REPORT INFORMATION
  Report Type: Spontaneous
  Country: US (occurrence: US)
  Receive Date: 20140825
  Receipt Date: 20140826
  Transmission Date: 20150326
  Serious: No
  Sender: FDA-Public Use
  Company Number: US-ASTRAZENECA-2008UW27793

PATIENT
  Age: 915 Month
  Sex: Female
  Weight: 68 kg

DRUGS (9)
  1. LUTEIN [Concomitant]
     Active Substance: LUTEIN
     Indication: EYE DISORDER
     Dosage: 40 MG NR
     Dates: start: 201311
  2. UNSPECIFIED VITAMINS [Concomitant]
     Indication: VITAMIN SUPPLEMENTATION
     Dates: start: 201311
  3. SYMBICORT [Suspect]
     Active Substance: BUDESONIDE\FORMOTEROL FUMARATE DIHYDRATE
     Indication: CHRONIC OBSTRUCTIVE PULMONARY DISEASE
     Dosage: 160 MCG/4.5 MCG, 2 PUFFS, BID
     Route: 055
     Dates: start: 20081108, end: 20081121
  4. LUTEIN [Concomitant]
     Active Substance: LUTEIN
     Indication: EYE DISORDER
     Dosage: 10 MG NR
     Dates: end: 201311
  5. SYMBICORT [Suspect]
     Active Substance: BUDESONIDE\FORMOTEROL FUMARATE DIHYDRATE
     Indication: CHRONIC OBSTRUCTIVE PULMONARY DISEASE
     Dosage: 160 MCG/4.5 MCG, 2 PUFFS, BID
     Route: 055
     Dates: start: 20130910, end: 201311
  6. NICOTINE. [Concomitant]
     Active Substance: NICOTINE
     Indication: SMOKING CESSATION THERAPY
  7. OASIS [Concomitant]
     Indication: DRY MOUTH
  8. BIOTIN [Concomitant]
     Active Substance: BIOTIN
     Indication: DRY MOUTH
  9. LUTEIN [Concomitant]
     Active Substance: LUTEIN
     Indication: EYE DISORDER
     Dosage: 40 MG NR

REACTIONS (12)
  - Productive cough [Unknown]
  - Dizziness [Recovering/Resolving]
  - Device misuse [Unknown]
  - Intentional product misuse [Unknown]
  - Dysgraphia [Unknown]
  - Back pain [Recovered/Resolved]
  - Abnormal dreams [Unknown]
  - Body height decreased [Unknown]
  - Dizziness postural [Unknown]
  - Dry mouth [Unknown]
  - Tremor [Unknown]
  - Visual impairment [Unknown]

NARRATIVE: CASE EVENT DATE: 200811
